FAERS Safety Report 4896002-1 (Version None)
Quarter: 2006Q1

REPORT INFORMATION
  Report Type: 
  Country: None (occurrence: None)
  Receive Date: 20060126
  Receipt Date: 20060116
  Transmission Date: 20060701
  Serious: Yes (Life-Threatening, Hospitalization)
  Sender: FDA-Public Use
  Company Number: 200610320BWH

PATIENT
  Age: 60 Year
  Sex: Male
  Weight: 82.5547 kg

DRUGS (8)
  1. NEXAVAR [Suspect]
     Indication: METASTATIC RENAL CELL CARCINOMA
     Dosage: 400 MG, QD , ORAL
     Route: 048
     Dates: start: 20051219, end: 20060111
  2. THALIDOMIDE [Concomitant]
  3. GEMZAR [Concomitant]
  4. PROLEUKIN [Concomitant]
  5. NEURONTIN [Concomitant]
  6. LASIX [Concomitant]
  7. HYDROCORTISONE [Concomitant]
  8. MORPHINE SULFATE [Concomitant]

REACTIONS (5)
  - BRAIN OEDEMA [None]
  - CONVULSION [None]
  - HYPERTENSION [None]
  - REVERSIBLE POSTERIOR LEUKOENCEPHALOPATHY SYNDROME [None]
  - SHOULDER PAIN [None]
